FAERS Safety Report 13177496 (Version 1)
Quarter: 2017Q1

REPORT INFORMATION
  Report Type: Report from Study
  Country: US (occurrence: US)
  Receive Date: 20170201
  Receipt Date: 20170201
  Transmission Date: 20170428
  Serious: No
  Sender: FDA-Public Use
  Company Number: US-EXELIXIS-CABO-16006388

PATIENT
  Sex: Male
  Weight: 88.2 kg

DRUGS (12)
  1. DEXAMETHASONE. [Concomitant]
     Active Substance: DEXAMETHASONE
  2. NEXIUM [Concomitant]
     Active Substance: ESOMEPRAZOLE MAGNESIUM
  3. MOVANTIK [Concomitant]
     Active Substance: NALOXEGOL OXALATE
  4. POLYETHYLENE GLYCOL [Concomitant]
     Active Substance: POLYETHYLENE GLYCOLS
  5. COLACE [Concomitant]
     Active Substance: DOCUSATE SODIUM
  6. COMETRIQ [Suspect]
     Active Substance: CABOZANTINIB S-MALATE
     Indication: RENAL CANCER
     Dosage: 60 MG, QD
     Route: 048
     Dates: start: 20160429, end: 201606
  7. LORAZEPAM. [Concomitant]
     Active Substance: LORAZEPAM
  8. FAMOTIDINE. [Concomitant]
     Active Substance: FAMOTIDINE
  9. ATENOLOL. [Concomitant]
     Active Substance: ATENOLOL
  10. TAMSULOSIN [Concomitant]
     Active Substance: TAMSULOSIN
  11. AMLODIPINE [Concomitant]
     Active Substance: AMLODIPINE BESYLATE
  12. LEVETIRACETAM. [Concomitant]
     Active Substance: LEVETIRACETAM

REACTIONS (3)
  - Condition aggravated [Unknown]
  - Off label use [Unknown]
  - Peripheral swelling [Unknown]
